FAERS Safety Report 7749816-4 (Version None)
Quarter: 2011Q3

REPORT INFORMATION
  Report Type: 
  Country: None (occurrence: None)
  Receive Date: 20110914
  Receipt Date: 20110826
  Transmission Date: 20111222
  Serious: No
  Sender: FDA-Public Use
  Company Number: US-BAYER-2011-079924

PATIENT
  Age: 63 Year
  Sex: Female

DRUGS (6)
  1. PILOCARPINE [Suspect]
  2. HALOPERIDOL [Suspect]
  3. LORAZEPAM [Suspect]
  4. COGENTIN [Suspect]
  5. ALEVE (CAPLET) [Suspect]
     Dosage: 220 MG, PRN
     Route: 048
     Dates: start: 20110824, end: 20110825
  6. VICOFORTE [Suspect]

REACTIONS (1)
  - SWELLING FACE [None]
